FAERS Safety Report 7047711-X (Version None)
Quarter: 2010Q4

REPORT INFORMATION
  Report Type: 
  Country: None (occurrence: None)
  Receive Date: 20101015
  Receipt Date: 20101005
  Transmission Date: 20110411
  Serious: Yes (Death, Hospitalization)
  Sender: FDA-Public Use
  Company Number: US-GENZYME-POMP-1001056

PATIENT
  Sex: Female

DRUGS (6)
  1. MYOZYME [Suspect]
     Indication: GLYCOGEN STORAGE DISEASE TYPE II
     Dosage: 20 MG/KG, Q2W
     Route: 042
     Dates: start: 20070701
  2. ENALAPRIL MALEATE [Concomitant]
     Indication: CARDIOMYOPATHY
     Dosage: 1 MG, BID
     Route: 065
  3. FLOVENT [Concomitant]
     Indication: BRONCHIAL HYPERREACTIVITY
     Dosage: 2 OTHER, BID
     Route: 055
  4. SYNAGIS [Concomitant]
     Indication: ANTIVIRAL PROPHYLAXIS
     Dosage: UNK UNK, Q4W
     Route: 065
  5. ALBUTEROL [Concomitant]
     Indication: BRONCHIAL HYPERREACTIVITY
     Dosage: UNK UNK, PRN
     Route: 055
  6. ALBUTEROL [Concomitant]
     Dosage: UNK

REACTIONS (8)
  - APNOEA [None]
  - ATELECTASIS [None]
  - BRADYCARDIA [None]
  - CARDIOPULMONARY FAILURE [None]
  - HYPOXIA [None]
  - LETHARGY [None]
  - MUSCULAR WEAKNESS [None]
  - PNEUMONIA [None]
